FAERS Safety Report 7475077-X (Version None)
Quarter: 2011Q2

REPORT INFORMATION
  Report Type: 
  Country: None (occurrence: None)
  Receive Date: 20110512
  Receipt Date: 20110504
  Transmission Date: 20111010
  Serious: Yes (Hospitalization)
  Sender: FDA-Public Use
  Company Number: US-US-EMD SERONO, INC.-7057992

PATIENT
  Sex: Female

DRUGS (5)
  1. ATENOLOL [Concomitant]
     Indication: HYPERTENSION
  2. REBIF [Suspect]
     Indication: MULTIPLE SCLEROSIS
     Route: 058
     Dates: start: 20070301, end: 20071201
  3. REBIF [Suspect]
     Route: 058
     Dates: start: 20101201, end: 20110401
  4. ASPIRIN [Concomitant]
     Indication: THROMBOSIS PROPHYLAXIS
  5. VICODIN [Concomitant]
     Indication: PAIN

REACTIONS (2)
  - INFLUENZA LIKE ILLNESS [None]
  - THROMBOSIS [None]
